FAERS Safety Report 10541507 (Version 9)
Quarter: 2015Q2

REPORT INFORMATION
  Report Type: Report from Study
  Country: US (occurrence: US)
  Receive Date: 20141024
  Receipt Date: 20150504
  Transmission Date: 20150821
  Serious: Yes (Other)
  Sender: FDA-Public Use
  Company Number: US-SA-2014SA141131

PATIENT
  Age: 54 Year
  Sex: Female

DRUGS (2)
  1. AUBAGIO [Suspect]
     Active Substance: TERIFLUNOMIDE
     Indication: MULTIPLE SCLEROSIS
     Route: 048
     Dates: start: 20141013, end: 20150101
  2. AUBAGIO [Suspect]
     Active Substance: TERIFLUNOMIDE
     Indication: MULTIPLE SCLEROSIS
     Route: 048
     Dates: start: 20141007, end: 20141010

REACTIONS (12)
  - Muscle spasms [Unknown]
  - Eye colour change [Unknown]
  - Fatigue [Unknown]
  - Nausea [Unknown]
  - White blood cell count decreased [Unknown]
  - Influenza [Unknown]
  - Drug dose omission [Unknown]
  - Alopecia [Unknown]
  - Hemiparesis [Unknown]
  - Malaise [Unknown]
  - Product packaging issue [Unknown]
  - Unevaluable event [Unknown]

NARRATIVE: CASE EVENT DATE: 201410
